FAERS Safety Report 17589255 (Version 2)
Quarter: 2021Q2

REPORT INFORMATION
  Report Type: Spontaneous
  Country: US (occurrence: US)
  Receive Date: 20200327
  Receipt Date: 20210413
  Transmission Date: 20210716
  Serious: No
  Sender: FDA-Public Use
  Company Number: US-ALLERGAN-1914094US

PATIENT
  Age: 60 Year
  Sex: Female

DRUGS (6)
  1. VITAMIN B12 [Concomitant]
     Active Substance: CYANOCOBALAMIN
     Dosage: UNK
     Route: 065
  2. MASCARA [Concomitant]
     Dosage: UNK
     Route: 005
  3. LATISSE [Suspect]
     Active Substance: BIMATOPROST
     Dosage: UNK UNK, BID
     Route: 061
     Dates: start: 2018, end: 2018
  4. BIOTIN [Concomitant]
     Active Substance: BIOTIN
     Dosage: UNK
     Route: 065
  5. MULTIVITAMIN [Concomitant]
     Active Substance: VITAMINS
     Dosage: UNK
     Route: 065
  6. LATISSE [Suspect]
     Active Substance: BIMATOPROST
     Indication: GROWTH OF EYELASHES
     Dosage: UNK UNK, BID
     Route: 061
     Dates: start: 201903

REACTIONS (5)
  - Erythema of eyelid [Unknown]
  - Wrong technique in product usage process [Unknown]
  - Incorrect dose administered [Unknown]
  - Expired product administered [Unknown]
  - Eyelids pruritus [Unknown]

NARRATIVE: CASE EVENT DATE: 201903
